FAERS Safety Report 7333362-6 (Version None)
Quarter: 2011Q1

REPORT INFORMATION
  Report Type: 
  Country: None (occurrence: None)
  Receive Date: 20110304
  Receipt Date: 20110221
  Transmission Date: 20110831
  Serious: Yes (Death, Other)
  Sender: FDA-Public Use
  Company Number: US-ELI_LILLY_AND_COMPANY-US201102006343

PATIENT
  Sex: Female

DRUGS (1)
  1. ALIMTA [Suspect]
     Indication: LUNG CARCINOMA CELL TYPE UNSPECIFIED STAGE IV
     Dates: start: 20070701, end: 20070701

REACTIONS (2)
  - BLOOD CREATININE INCREASED [None]
  - DEATH [None]
